FAERS Safety Report 23159807 (Version 1)
Quarter: 2023Q4

REPORT INFORMATION
  Report Type: Spontaneous
  Country: SE (occurrence: SE)
  Receive Date: 20231108
  Receipt Date: 20231108
  Transmission Date: 20240110
  Serious: Yes (Other)
  Sender: FDA-Public Use
  Company Number: None

PATIENT
  Age: 24 Year
  Sex: Female

DRUGS (2)
  1. RINVOQ [Suspect]
     Active Substance: UPADACITINIB
     Indication: Dermatitis atopic
     Dosage: 1X1
     Route: 048
     Dates: start: 20230516, end: 20231102
  2. MONTELUKAST KRKA [Concomitant]
     Indication: Product used for unknown indication
     Dosage: 1X1
     Route: 048
     Dates: start: 20211116

REACTIONS (4)
  - Hordeolum [Not Recovered/Not Resolved]
  - Dry eye [Unknown]
  - Visual impairment [Not Recovered/Not Resolved]
  - Herpes simplex [Unknown]

NARRATIVE: CASE EVENT DATE: 20230904
